FAERS Safety Report 5822900-8 (Version None)
Quarter: 2008Q3

REPORT INFORMATION
  Report Type: 
  Country: None (occurrence: None)
  Receive Date: 20080725
  Receipt Date: 20080724
  Transmission Date: 20090109
  Serious: Yes (Other)
  Sender: FDA-Public Use
  Company Number: A0680847A

PATIENT
  Sex: Female

DRUGS (3)
  1. ALLI [Suspect]
     Indication: DRUG USE FOR UNKNOWN INDICATION
     Route: 048
     Dates: start: 20071001
  2. UNSPECIFIED MEDICATION [Suspect]
  3. RADIATION [Concomitant]

REACTIONS (20)
  - ABDOMINAL PAIN [None]
  - ADVERSE REACTION [None]
  - ARTHRITIS [None]
  - BACK PAIN [None]
  - BREAST CANCER [None]
  - COUGH [None]
  - DEPRESSION [None]
  - FATIGUE [None]
  - HEADACHE [None]
  - JOINT SWELLING [None]
  - MALAISE [None]
  - NASOPHARYNGITIS [None]
  - NECK PAIN [None]
  - OEDEMA PERIPHERAL [None]
  - PAIN [None]
  - PAIN IN EXTREMITY [None]
  - SLEEP DISORDER [None]
  - STRESS [None]
  - THERAPEUTIC RESPONSE UNEXPECTED [None]
  - WEIGHT INCREASED [None]
